FAERS Safety Report 11639898 (Version 2)
Quarter: 2015Q4

REPORT INFORMATION
  Report Type: Spontaneous
  Country: JP (occurrence: JP)
  Receive Date: 20151019
  Receipt Date: 20151215
  Transmission Date: 20160304
  Serious: Yes (Hospitalization)
  Sender: FDA-Public Use
  Company Number: JP-EISAI MEDICAL RESEARCH-EC-2015-011207

PATIENT
  Sex: Female

DRUGS (4)
  1. MERCAZOLE [Concomitant]
     Active Substance: CARBIMAZOLE
     Indication: ENDOCRINE OPHTHALMOPATHY
     Route: 048
     Dates: start: 20150831, end: 20150902
  2. PROPACIL [Concomitant]
     Indication: ENDOCRINE OPHTHALMOPATHY
     Dosage: UNKNOWN
     Route: 048
     Dates: start: 20150728, end: 20150831
  3. PARIET [Suspect]
     Active Substance: RABEPRAZOLE SODIUM
     Indication: PRODUCT USED FOR UNKNOWN INDICATION
     Route: 048
     Dates: end: 20150831
  4. PREDONINE [Concomitant]
     Active Substance: PREDNISOLONE\PREDNISOLONE ACETATE\PREDNISOLONE SODIUM SUCCINATE
     Indication: ENDOCRINE OPHTHALMOPATHY
     Route: 048
     Dates: start: 20150821, end: 20150902

REACTIONS (1)
  - Liver disorder [Recovering/Resolving]

NARRATIVE: CASE EVENT DATE: 20150831
